FAERS Safety Report 9616737 (Version 1)
Quarter: 2013Q4

REPORT INFORMATION
  Report Type: Spontaneous
  Country: FR (occurrence: FR)
  Receive Date: 20131011
  Receipt Date: 20131011
  Transmission Date: 20140711
  Serious: Yes (Other)
  Sender: FDA-Public Use
  Company Number: FR-ABBVIE-13P-056-1154394-00

PATIENT
  Age: 53 Year
  Sex: Female
  Weight: 140 kg

DRUGS (1)
  1. HUMIRA [Suspect]
     Indication: CROHN^S DISEASE
     Dates: start: 201211

REACTIONS (2)
  - Hepatocellular injury [Unknown]
  - Hepatic steatosis [Unknown]
